FAERS Safety Report 19519908 (Version 1)
Quarter: 2021Q3

REPORT INFORMATION
  Report Type: Report from Study
  Country: US (occurrence: US)
  Receive Date: 20210712
  Receipt Date: 20210712
  Transmission Date: 20211014
  Serious: Yes (Other)
  Sender: FDA-Public Use
  Company Number: US-JNJFOC-20210715608

PATIENT
  Age: 67 Year
  Sex: Female

DRUGS (2)
  1. DIGOXIN. [Concomitant]
     Active Substance: DIGOXIN
  2. SELEXIPAG [Suspect]
     Active Substance: SELEXIPAG
     Indication: PULMONARY ARTERIAL HYPERTENSION
     Route: 048
     Dates: start: 20210623

REACTIONS (7)
  - Oesophageal stenosis [Unknown]
  - Nausea [Unknown]
  - Confusional state [Unknown]
  - Swelling [Unknown]
  - Vomiting [Unknown]
  - Hallucination [Unknown]
  - Decreased appetite [Unknown]

NARRATIVE: CASE EVENT DATE: 202106
